FAERS Safety Report 10162656 (Version 2)
Quarter: 2014Q2

REPORT INFORMATION
  Report Type: Spontaneous
  Country: US (occurrence: US)
  Receive Date: 20140509
  Receipt Date: 20140530
  Transmission Date: 20141212
  Serious: No
  Sender: FDA-Public Use
  Company Number: US-PFIZER INC-2014127521

PATIENT
  Sex: Male

DRUGS (1)
  1. LYRICA [Suspect]
     Dosage: UNK
     Dates: start: 20140504

REACTIONS (5)
  - Gait disturbance [Unknown]
  - Fall [Unknown]
  - Snoring [Unknown]
  - Limb discomfort [Unknown]
  - Therapeutic response changed [Unknown]
